FAERS Safety Report 4511262-4 (Version None)
Quarter: 2004Q4

REPORT INFORMATION
  Report Type: 
  Country: None (occurrence: None)
  Receive Date: 20041122
  Receipt Date: 20041110
  Transmission Date: 20050328
  Serious: Yes (Hospitalization)
  Sender: FDA-Public Use
  Company Number: 2004SE05632

PATIENT
  Age: 60 Year
  Sex: Female
  Weight: 93 kg

DRUGS (4)
  1. CRESTOR [Suspect]
     Indication: HYPERCHOLESTEROLAEMIA
     Dosage: 10 MG PO
     Route: 048
     Dates: start: 20040921, end: 20040930
  2. ZYLORIC (ALLOPURINOLE) [Concomitant]
     Indication: HYPERURICAEMIA
     Dates: start: 20040921, end: 20041001
  3. ATENOLOLE [Concomitant]
  4. LOSEC [Concomitant]

REACTIONS (11)
  - DIALYSIS [None]
  - ERYTHEMA [None]
  - EXANTHEM [None]
  - HYPERPYREXIA [None]
  - NEPHROPATHY [None]
  - PRURITUS [None]
  - RASH MACULO-PAPULAR [None]
  - RASH MORBILLIFORM [None]
  - RENAL FAILURE ACUTE [None]
  - STOMATITIS [None]
  - TOXIC SKIN ERUPTION [None]
